FAERS Safety Report 5091119-3 (Version None)
Quarter: 2006Q3

REPORT INFORMATION
  Report Type: 
  Country: None (occurrence: None)
  Receive Date: 20060829
  Receipt Date: 20060808
  Transmission Date: 20061208
  Serious: Yes (Other)
  Sender: FDA-Public Use
  Company Number: US-BAYER-200613367BCC

PATIENT
  Sex: Female
  Weight: 73 kg

DRUGS (5)
  1. ALEVE (CAPLET) [Suspect]
     Indication: PROCEDURAL PAIN
     Dosage: UNIT DOSE: 220 MG
     Route: 048
  2. ASPIRIN [Suspect]
  3. LIPITOR [Concomitant]
  4. DIABETES MEDICATION [Concomitant]
  5. HIGH BLOOD PRESSURE MEDICATION [Concomitant]

REACTIONS (1)
  - COAGULATION TIME PROLONGED [None]
